FAERS Safety Report 6809427-1 (Version None)
Quarter: 2010Q2

REPORT INFORMATION
  Report Type: 
  Country: None (occurrence: None)
  Receive Date: 20100625
  Receipt Date: 20100618
  Transmission Date: 20101027
  Serious: Yes (Hospitalization)
  Sender: FDA-Public Use
  Company Number: 2010SP001723

PATIENT
  Age: 68 Year
  Sex: Male
  Weight: 97.5 kg

DRUGS (7)
  1. LUNESTA [Suspect]
     Dosage: 2 MG; ORAL; 3 MG; ORAL
     Route: 048
  2. PROCARDIA XL [Concomitant]
  3. ENALAPRIL MALEATE [Concomitant]
  4. CRESTOR [Concomitant]
  5. NEXIUM [Concomitant]
  6. LEXAPRO [Concomitant]
  7. ASPIRIN [Concomitant]

REACTIONS (7)
  - BENIGN PROSTATIC HYPERPLASIA [None]
  - CHROMATURIA [None]
  - FLUID RETENTION [None]
  - INGUINAL HERNIA [None]
  - POLYURIA [None]
  - PROCEDURAL PAIN [None]
  - SPINAL COLUMN STENOSIS [None]
